FAERS Safety Report 21862760 (Version 2)
Quarter: 2023Q2

REPORT INFORMATION
  Report Type: Report from Study
  Country: BR (occurrence: BR)
  Receive Date: 20230114
  Receipt Date: 20230417
  Transmission Date: 20230721
  Serious: Yes (Other)
  Sender: FDA-Public Use
  Company Number: BR-002147023-NVSC2023BR007496

PATIENT
  Age: 50 Year
  Sex: Female
  Weight: 160 kg

DRUGS (10)
  1. COSENTYX [Suspect]
     Active Substance: SECUKINUMAB
     Indication: Product used for unknown indication
     Dosage: 2 DOSAGE FORM, QMO (APPLIES IN THE BELLY)
     Route: 065
  2. FLAVONID [Concomitant]
     Indication: Vein disorder
     Dosage: 2 DOSAGE FORM, QD (ABOUT 3 YEARS AGO)
     Route: 048
  3. LOSARTAN AND HYDROCHLOROTHIAZIDE [Concomitant]
     Active Substance: HYDROCHLOROTHIAZIDE\LOSARTAN POTASSIUM
     Indication: Hypertension
     Dosage: 1 DOSAGE FORM, QD (ABOUT 7 YEARS AGO)
     Route: 048
  4. LOSARTAN [Concomitant]
     Active Substance: LOSARTAN
     Indication: Hypertension
     Dosage: 1 DOSAGE FORM, QD (ABOUT 7 YEARS AGO)
     Route: 065
  5. MELOXICAM [Concomitant]
     Active Substance: MELOXICAM
     Indication: Product used for unknown indication
     Dosage: 1 DOSAGE FORM, QD (8 YEARS AGO)
     Route: 048
  6. CYCLOBENZAPRINE [Concomitant]
     Active Substance: CYCLOBENZAPRINE
     Indication: Pain in extremity
     Dosage: 1 DOSAGE FORM, QD (8 YEARS AGO)
     Route: 048
  7. ACETAMINOPHEN [Concomitant]
     Active Substance: ACETAMINOPHEN
     Indication: Pain in extremity
     Dosage: 1 DOSAGE FORM, QD (8 YEARS AGO)
     Route: 048
  8. CARBAMAZEPINE [Concomitant]
     Active Substance: CARBAMAZEPINE
     Indication: Depression
     Dosage: 1 DOSAGE FORM, BID
     Route: 048
     Dates: start: 2011
  9. BIPERIDEN [Concomitant]
     Active Substance: BIPERIDEN
     Indication: Depression
     Dosage: 1 DOSAGE FORM, QD
     Route: 048
     Dates: start: 2011
  10. RIVOTRIL [Concomitant]
     Active Substance: CLONAZEPAM
     Indication: Depression
     Dosage: UNK, QD (6 DROPS)
     Route: 048
     Dates: start: 2011

REACTIONS (8)
  - Breast cancer [Unknown]
  - Psoriasis [Recovered/Resolved]
  - Wound [Recovered/Resolved]
  - Pruritus [Recovered/Resolved]
  - Nervousness [Recovered/Resolved]
  - Memory impairment [Not Recovered/Not Resolved]
  - Sleep disorder [Not Recovered/Not Resolved]
  - Discouragement [Not Recovered/Not Resolved]

NARRATIVE: CASE EVENT DATE: 20220201
